FAERS Safety Report 18314218 (Version 1)
Quarter: 2020Q3

REPORT INFORMATION
  Report Type: Spontaneous
  Country: FR (occurrence: FR)
  Receive Date: 20200925
  Receipt Date: 20200925
  Transmission Date: 20201103
  Serious: Yes (Life-Threatening, Hospitalization)
  Sender: FDA-Public Use
  Company Number: FR-JNJFOC-20200926569

PATIENT
  Age: 82 Year
  Sex: Male

DRUGS (2)
  1. BORTEZOMIB. [Suspect]
     Active Substance: BORTEZOMIB
     Indication: PLASMA CELL MYELOMA
     Dosage: J1/J10/J18
     Route: 058
     Dates: start: 20200706, end: 20200723
  2. DARZALEX [Suspect]
     Active Substance: DARATUMUMAB
     Indication: PLASMA CELL MYELOMA
     Dosage: J1/J4/J10/J17
     Route: 042
     Dates: start: 20200706, end: 20200722

REACTIONS (1)
  - Cardio-respiratory arrest [Recovered/Resolved]

NARRATIVE: CASE EVENT DATE: 20200731
